FAERS Safety Report 5424730-8 (Version None)
Quarter: 2007Q3

REPORT INFORMATION
  Report Type: 
  Country: None (occurrence: None)
  Receive Date: 20070822
  Receipt Date: 20070822
  Transmission Date: 20080115
  Serious: Yes (Hospitalization)
  Sender: FDA-Public Use
  Company Number: None

PATIENT
  Age: 56 Year
  Sex: Female

DRUGS (9)
  1. METFORMIN HCL [Suspect]
     Indication: TYPE 2 DIABETES MELLITUS
     Dosage: 500MG PO BID PRIOR TO ADMIT 7/31/07
     Route: 048
     Dates: start: 20070731
  2. LISINOPRIL [Suspect]
     Indication: DIABETES MELLITUS
     Dosage: 20MG DAILY PO PRIOR TO ADMIT 07/31/2007
     Route: 048
     Dates: start: 20070731
  3. LISINOPRIL [Suspect]
     Indication: HYPERTENSION
     Dosage: 20MG DAILY PO PRIOR TO ADMIT 07/31/2007
     Route: 048
     Dates: start: 20070731
  4. LASIX [Concomitant]
  5. COUMADIN [Concomitant]
  6. LANTUS [Concomitant]
  7. ZOCOR [Concomitant]
  8. OXYCONTIN [Concomitant]
  9. ZANTAC 150 [Concomitant]

REACTIONS (2)
  - LACTIC ACIDOSIS [None]
  - RENAL FAILURE ACUTE [None]
